FAERS Safety Report 9605649 (Version 1)
Quarter: 2013Q4

REPORT INFORMATION
  Report Type: Spontaneous
  Country: US (occurrence: US)
  Receive Date: 20131008
  Receipt Date: 20131008
  Transmission Date: 20140711
  Serious: Yes (Death)
  Sender: FDA-Public Use
  Company Number: US-ELI_LILLY_AND_COMPANY-US201310001648

PATIENT
  Age: 70 Year
  Sex: 0

DRUGS (1)
  1. EFFIENT [Suspect]

REACTIONS (1)
  - Death [Fatal]
